FAERS Safety Report 11722604 (Version 1)
Quarter: 2015Q4

REPORT INFORMATION
  Report Type: Spontaneous
  Country: US (occurrence: US)
  Receive Date: 20151111
  Receipt Date: 20151111
  Transmission Date: 20160304
  Serious: No
  Sender: FDA-Public Use
  Company Number: US-PFIZER INC-2015369710

PATIENT
  Age: 51 Year
  Sex: Female
  Weight: 73 kg

DRUGS (4)
  1. LYRICA [Suspect]
     Active Substance: PREGABALIN
     Dosage: 1 CAPSULE (LOWEST DOSE) 2X/DAY
     Route: 048
     Dates: start: 20151001
  2. LYRICA [Suspect]
     Active Substance: PREGABALIN
     Dosage: 75 MG, 2X/DAY CAPSULE BY MOUTH
     Route: 048
  3. LYRICA [Suspect]
     Active Substance: PREGABALIN
     Indication: FIBROMYALGIA
     Dosage: 1 DF, 1 CAPSULE, 1X/DAY LOWEST DOSE BY MOUTH
     Route: 048
     Dates: start: 20151001
  4. HYDROCODONE [Concomitant]
     Active Substance: HYDROCODONE
     Dosage: 1/2 TABLET
     Dates: start: 20151023

REACTIONS (3)
  - Drug ineffective [Unknown]
  - Condition aggravated [Not Recovered/Not Resolved]
  - Pain [Not Recovered/Not Resolved]
